FAERS Safety Report 6562167-9 (Version None)
Quarter: 2010Q1

REPORT INFORMATION
  Report Type: 
  Country: None (occurrence: None)
  Receive Date: 20100130
  Receipt Date: 20091103
  Transmission Date: 20100710
  Serious: No
  Sender: FDA-Public Use
  Company Number: US-ABBOTT-09P-163-0607023-00

PATIENT
  Sex: Female

DRUGS (2)
  1. HUMIRA [Suspect]
     Indication: CROHN'S DISEASE
     Dates: start: 20090801
  2. DOXYCYCLINE [Suspect]
     Indication: ACNE
     Dates: start: 20090101, end: 20090101

REACTIONS (2)
  - ACNE [None]
  - GASTRIC ULCER [None]
